FAERS Safety Report 18113360 (Version 1)
Quarter: 2020Q3

REPORT INFORMATION
  Report Type: Spontaneous
  Country: US (occurrence: US)
  Receive Date: 20200805
  Receipt Date: 20200805
  Transmission Date: 20201103
  Serious: No
  Sender: FDA-Public Use
  Company Number: US-PFIZER INC-2020294665

PATIENT
  Sex: Female

DRUGS (1)
  1. GABAPENTIN. [Suspect]
     Active Substance: GABAPENTIN
     Dosage: UNK (THREE DOSES DURING THE DAY BUT THE NIGHT DOSE IS THE WORST)

REACTIONS (3)
  - Poor quality product administered [Unknown]
  - Product taste abnormal [Unknown]
  - Dizziness [Unknown]
